FAERS Safety Report 25544398 (Version 1)
Quarter: 2025Q3

REPORT INFORMATION
  Report Type: Spontaneous
  Country: KR (occurrence: KR)
  Receive Date: 20250711
  Receipt Date: 20250711
  Transmission Date: 20251020
  Serious: Yes (Other)
  Sender: PFIZER
  Company Number: KR-PFIZER INC-202500132955

PATIENT
  Age: 58 Year
  Sex: Female

DRUGS (3)
  1. CARBOPLATIN [Suspect]
     Active Substance: CARBOPLATIN
     Indication: Chemotherapy
     Dosage: 476 MG, EVERY 3 WEEKS
     Dates: start: 20240904, end: 20241016
  2. ETOPOSIDE [Suspect]
     Active Substance: ETOPOSIDE
     Indication: Chemotherapy
     Dosage: 129 MG, EVERY 3 WEEKS
     Dates: start: 20240904, end: 20241018
  3. IFOSFAMIDE [Suspect]
     Active Substance: IFOSFAMIDE
     Indication: Chemotherapy
     Dosage: 2151 MG, EVERY 3 WEEKS
     Dates: start: 20240904, end: 20241018

REACTIONS (2)
  - Seizure [Recovering/Resolving]
  - Cyanosis [Recovering/Resolving]

NARRATIVE: CASE EVENT DATE: 20241016
